FAERS Safety Report 16830140 (Version 1)
Quarter: 2019Q3

REPORT INFORMATION
  Report Type: Report from Study
  Country: None (occurrence: US)
  Receive Date: 20190919
  Receipt Date: 20190919
  Transmission Date: 20191005
  Serious: Yes (Other)
  Sender: FDA-Public Use
  Company Number: US-ABBVIE-19K-163-2930151-00

PATIENT
  Sex: Male

DRUGS (1)
  1. CREON [Suspect]
     Active Substance: PANCRELIPASE AMYLASE\PANCRELIPASE LIPASE\PANCRELIPASE PROTEASE
     Indication: PRODUCT USED FOR UNKNOWN INDICATION
     Route: 048

REACTIONS (8)
  - Abdominal hernia [Unknown]
  - Coronary angioplasty [Unknown]
  - Cardiac operation [Unknown]
  - Trunk injury [Unknown]
  - Rotator cuff repair [Unknown]
  - Fracture [Unknown]
  - Endoscopy gastrointestinal [Unknown]
  - Tenoplasty [Unknown]

NARRATIVE: CASE EVENT DATE: 2010
